FAERS Safety Report 9527500 (Version 1)
Quarter: 2013Q1

REPORT INFORMATION
  Report Type: Spontaneous
  Country: US (occurrence: None)
  Receive Date: 20130314
  Receipt Date: 20130314
  Transmission Date: 20140127
  Serious: No
  Sender: FDA-Public Use
  Company Number: 1210USA001065

PATIENT
  Age: 54 Year
  Sex: Female

DRUGS (3)
  1. PEG-INTRON [Suspect]
     Indication: HEPATITIS C
     Dosage: REDIPEN
     Dates: start: 20120824
  2. RIBAVIRIN [Suspect]
     Indication: HEPATITIS C
     Dosage: 6 PILLS DAILY, ORAL
     Route: 048
     Dates: start: 20120824
  3. VICTRELIS [Suspect]
     Indication: HEPATITIS C
     Route: 048
     Dates: start: 20120927

REACTIONS (23)
  - Laboratory test abnormal [None]
  - Headache [None]
  - Rash [None]
  - White blood cell count decreased [None]
  - Asthenia [None]
  - Malaise [None]
  - Nausea [None]
  - Leukopenia [None]
  - Thirst [None]
  - Dry mouth [None]
  - Vomiting [None]
  - Neck pain [None]
  - Dysgeusia [None]
  - Red blood cell count decreased [None]
  - Haemoglobin decreased [None]
  - Abdominal discomfort [None]
  - Fatigue [None]
  - Decreased appetite [None]
  - Anaemia [None]
  - Haemoglobin decreased [None]
  - Fatigue [None]
  - Dyspnoea [None]
  - Rash [None]
